FAERS Safety Report 21923054 (Version 1)
Quarter: 2023Q1

REPORT INFORMATION
  Report Type: Spontaneous
  Country: US (occurrence: US)
  Receive Date: 20230129
  Receipt Date: 20230129
  Transmission Date: 20230418
  Serious: Yes (Other)
  Sender: FDA-Public Use
  Company Number: US-JNJFOC-20230143855

PATIENT
  Age: 59 Year
  Sex: Male
  Weight: 104.42 kg

DRUGS (4)
  1. REMICADE [Suspect]
     Active Substance: INFLIXIMAB
     Indication: Colitis ulcerative
     Dosage: 2 WEEKS LATER, 4 WEEKS LATER, THEN EVERY 8 WEEKS
     Route: 041
     Dates: start: 20230119
  2. LIALDA [Concomitant]
     Active Substance: MESALAMINE
     Indication: Colitis ulcerative
     Route: 065
  3. PREDNISONE [Concomitant]
     Active Substance: PREDNISONE
     Indication: Product used for unknown indication
     Route: 065
  4. PREDNISONE [Concomitant]
     Active Substance: PREDNISONE
     Route: 065

REACTIONS (8)
  - Colitis ulcerative [Not Recovered/Not Resolved]
  - Renal pain [Recovered/Resolved]
  - Anxiety [Unknown]
  - Back pain [Recovered/Resolved]
  - Hypertension [Recovering/Resolving]
  - Headache [Recovered/Resolved]
  - Infusion related reaction [Recovering/Resolving]
  - Incorrect drug administration rate [Unknown]
